FAERS Safety Report 9270275 (Version 1)
Quarter: 2013Q2

REPORT INFORMATION
  Report Type: Spontaneous
  Country: US (occurrence: US)
  Receive Date: 20130503
  Receipt Date: 20130503
  Transmission Date: 20140414
  Serious: Yes (Other)
  Sender: FDA-Public Use
  Company Number: US-BRISTOL-MYERS SQUIBB COMPANY-18827386

PATIENT
  Age: 60 Year
  Sex: Female
  Weight: 72.56 kg

DRUGS (9)
  1. ABILIFY [Suspect]
     Indication: ANXIETY
     Dosage: INT IN JAN13:
     Dates: end: 201301
  2. ADDERALL XR [Concomitant]
     Dosage: SINCE 50YRS OF AGE
  3. ARIMIDEX [Concomitant]
  4. ACTONEL [Concomitant]
  5. ZOLOFT [Concomitant]
  6. VALIUM [Concomitant]
  7. VAGIFEM [Concomitant]
     Indication: ATROPHY
  8. SYNTHROID [Concomitant]
  9. DEPAKOTE [Concomitant]

REACTIONS (5)
  - Thyroid cancer [Unknown]
  - Dyspnoea [Unknown]
  - Trismus [Unknown]
  - Weight increased [Unknown]
  - Off label use [Unknown]
